FAERS Safety Report 9123415 (Version 13)
Quarter: 2015Q2

REPORT INFORMATION
  Report Type: Report from Study
  Country: CA (occurrence: CA)
  Receive Date: 20130114
  Receipt Date: 20150624
  Transmission Date: 20150821
  Serious: Yes (Hospitalization, Other)
  Sender: FDA-Public Use
  Company Number: CA-ROCHE-1002248

PATIENT
  Age: 52 Year
  Sex: Male
  Weight: 49 kg

DRUGS (9)
  1. NOVO-GESIC (CANADA) [Concomitant]
     Route: 048
  2. PREDNISONE. [Concomitant]
     Active Substance: PREDNISONE
     Route: 048
  3. ACTEMRA [Suspect]
     Active Substance: TOCILIZUMAB
     Route: 042
     Dates: start: 20120416
  4. ACTONEL [Concomitant]
     Active Substance: RISEDRONATE SODIUM
     Route: 048
  5. ACTEMRA [Suspect]
     Active Substance: TOCILIZUMAB
     Indication: RHEUMATOID ARTHRITIS
     Route: 042
     Dates: start: 20101115
  6. ATIVAN [Concomitant]
     Active Substance: LORAZEPAM
     Dosage: DOSE: PRN
     Route: 048
  7. ACTEMRA [Suspect]
     Active Substance: TOCILIZUMAB
     Route: 042
     Dates: start: 20130129
  8. RISEDRONATE TEVA [Concomitant]
     Active Substance: RISEDRONATE SODIUM
     Route: 048
  9. SULFASALAZINE. [Concomitant]
     Active Substance: SULFASALAZINE
     Route: 048

REACTIONS (12)
  - Dyspepsia [Unknown]
  - Seizure [Recovered/Resolved]
  - Weight decreased [Not Recovered/Not Resolved]
  - Paraesthesia [Not Recovered/Not Resolved]
  - Dizziness [Recovered/Resolved]
  - Liver disorder [Unknown]
  - Blood pressure decreased [Recovered/Resolved]
  - Chills [Recovered/Resolved]
  - Viral infection [Unknown]
  - Abdominal pain [Recovering/Resolving]
  - Hepatic enzyme increased [Unknown]
  - Pancreatitis relapsing [Unknown]

NARRATIVE: CASE EVENT DATE: 20111002
